FAERS Safety Report 9365769 (Version 1)
Quarter: 2013Q2

REPORT INFORMATION
  Report Type: Spontaneous
  Country: US (occurrence: None)
  Receive Date: 20130624
  Receipt Date: 20130624
  Transmission Date: 20140414
  Serious: No
  Sender: FDA-Public Use
  Company Number: None

PATIENT
  Age: 77 Year
  Sex: Female

DRUGS (1)
  1. XELODA [Suspect]
     Indication: BREAST CANCER
     Dosage: 2000MG  BID  PO
     Route: 048
     Dates: start: 20070817, end: 20130603

REACTIONS (9)
  - Blister [None]
  - Pain in extremity [None]
  - Pain [None]
  - Nail bed disorder [None]
  - Impaired healing [None]
  - Tooth extraction [None]
  - Nausea [None]
  - Vomiting [None]
  - Rash [None]
